FAERS Safety Report 5694659-9 (Version None)
Quarter: 2008Q2

REPORT INFORMATION
  Report Type: 
  Country: None (occurrence: None)
  Receive Date: 20080404
  Receipt Date: 20080331
  Transmission Date: 20081010
  Serious: Yes (Death, Hospitalization)
  Sender: FDA-Public Use
  Company Number: A0718352A

PATIENT
  Sex: Female

DRUGS (3)
  1. AVANDIA [Suspect]
     Dosage: 500MG AT NIGHT
     Route: 048
  2. HEART MEDICATION [Concomitant]
  3. ASPIRIN [Concomitant]

REACTIONS (3)
  - CARDIAC ARREST [None]
  - FLUID RETENTION [None]
  - RENAL DISORDER [None]
